FAERS Safety Report 13906729 (Version 1)
Quarter: 2017Q3

REPORT INFORMATION
  Report Type: Spontaneous
  Country: ES (occurrence: ES)
  Receive Date: 20170825
  Receipt Date: 20170825
  Transmission Date: 20171127
  Serious: Yes (Death, Hospitalization)
  Sender: FDA-Public Use
  Company Number: PHHY2017ES124297

PATIENT
  Age: 11 Year
  Sex: Female

DRUGS (3)
  1. LAMOTRIGINE. [Suspect]
     Active Substance: LAMOTRIGINE
     Indication: SEIZURE
     Dosage: 25 MG, IN THE MORNING
     Route: 065
  2. LAMOTRIGINE. [Suspect]
     Active Substance: LAMOTRIGINE
     Dosage: 50 MG, AT NIGHT
     Route: 065
  3. IBUPROFEN. [Concomitant]
     Active Substance: IBUPROFEN
     Indication: ANALGESIC THERAPY
     Dosage: 600 MG, Q8H
     Route: 065

REACTIONS (8)
  - Toxic epidermal necrolysis [Fatal]
  - Rash [Fatal]
  - Septic shock [Fatal]
  - Skin exfoliation [Fatal]
  - Cardiac arrest [Fatal]
  - Rash generalised [Fatal]
  - Blister [Fatal]
  - Pyrexia [Fatal]
